FAERS Safety Report 5247220-4 (Version None)
Quarter: 2007Q1

REPORT INFORMATION
  Report Type: 
  Country: None (occurrence: None)
  Receive Date: 20070220
  Receipt Date: 20070205
  Transmission Date: 20070707
  Serious: Yes (Hospitalization)
  Sender: FDA-Public Use
  Company Number: 07-000278

PATIENT
  Age: 50 Year
  Sex: Female
  Weight: 68.5 kg

DRUGS (3)
  1. FEMHRT [Suspect]
     Indication: MENOPAUSAL SYMPTOMS
     Dosage: 1 MG/5MCG, QD, ORAL
     Route: 048
     Dates: start: 20020101
  2. ALLEGRA /01314201/ (FEXOFENADINE) [Concomitant]
  3. NEXIUM /01479302/ (ESOMEPRAZOLE MAGNESIUM) [Concomitant]

REACTIONS (6)
  - ANXIETY [None]
  - BLOOD PRESSURE INCREASED [None]
  - FEELING HOT [None]
  - HYPOAESTHESIA [None]
  - MALAISE [None]
  - PALPITATIONS [None]
